FAERS Safety Report 20643268 (Version 1)
Quarter: 2022Q1

REPORT INFORMATION
  Report Type: Spontaneous
  Country: US (occurrence: None)
  Receive Date: 20220325
  Receipt Date: 20220325
  Transmission Date: 20220423
  Serious: Yes (Other)
  Sender: FDA-Public Use
  Company Number: None

PATIENT
  Age: 62 Year
  Sex: Male

DRUGS (2)
  1. RAMIPRIL [Suspect]
     Active Substance: RAMIPRIL
     Indication: Hypertension
     Dates: start: 20220306, end: 20220308
  2. RAMIPRIL [Suspect]
     Active Substance: RAMIPRIL
     Indication: Diabetes mellitus

REACTIONS (2)
  - Angioedema [None]
  - Dyspnoea [None]

NARRATIVE: CASE EVENT DATE: 20220308
